FAERS Safety Report 8877513 (Version 2)
Quarter: 2013Q1

REPORT INFORMATION
  Report Type: Spontaneous
  Country: TR (occurrence: None)
  Receive Date: 20121025
  Receipt Date: 20130110
  Transmission Date: 20140127
  Serious: Yes (Death, Hospitalization)
  Sender: FDA-Public Use
  Company Number: VAL_00932_2012

PATIENT
  Age: 40 Year
  Sex: Male

DRUGS (7)
  1. METOPROLOL [Suspect]
     Indication: PRODUCT USED FOR UNKNOWN INDICATION
  2. CLOPIDOGREL [Concomitant]
  3. RAMIPRIL [Concomitant]
  4. ATORVASTATIN [Concomitant]
  5. LANSOPRAZOLE [Concomitant]
  6. HEPARIN [Concomitant]
  7. ORGANIC NITRATES [Concomitant]

REACTIONS (22)
  - Septic embolus [None]
  - Coronary artery embolism [None]
  - Endocarditis [None]
  - Acute myocardial infarction [None]
  - Pyrexia [None]
  - Mitral valve disease [None]
  - Staphylococcal infection [None]
  - Asthenia [None]
  - Cough [None]
  - Abdominal pain [None]
  - Pallor [None]
  - Weight decreased [None]
  - Ocular icterus [None]
  - Aortic valve disease [None]
  - Ventricular fibrillation [None]
  - Ischaemic hepatitis [None]
  - Cardiac arrest [None]
  - Acute myocardial infarction [None]
  - International normalised ratio increased [None]
  - Blood urea increased [None]
  - Haemoglobin decreased [None]
  - Haematocrit decreased [None]
